FAERS Safety Report 4578056-5 (Version None)
Quarter: 2005Q1

REPORT INFORMATION
  Report Type: 
  Country: None (occurrence: None)
  Receive Date: 20050202
  Receipt Date: 20050202
  Transmission Date: 20050727
  Serious: Yes (Hospitalization)
  Sender: FDA-Public Use
  Company Number: None

PATIENT
  Age: 65 Year
  Sex: Male
  Weight: 84.369 kg

DRUGS (10)
  1. MEGACE [Suspect]
     Indication: CHEMOTHERAPY
     Dosage: 20 ML; PO, DAILY
     Route: 048
     Dates: start: 20041008, end: 20041230
  2. MEGACE [Suspect]
     Indication: WEIGHT DECREASED
     Dosage: 20 ML; PO, DAILY
     Route: 048
     Dates: start: 20041008, end: 20041230
  3. PANCREASE [Concomitant]
  4. CARDIZEM CD [Concomitant]
  5. REGLAN [Concomitant]
  6. PRILOSEC [Concomitant]
  7. SPIROLACTONE [Concomitant]
  8. AMBIEN [Concomitant]
  9. MEGACE ELIXIR [Concomitant]
  10. AUGMENTIN '125' [Concomitant]

REACTIONS (7)
  - DEHYDRATION [None]
  - DIZZINESS [None]
  - HYPOTENSION [None]
  - LARYNGEAL DISORDER [None]
  - LOCAL SWELLING [None]
  - SEPSIS SYNDROME [None]
  - SOFT TISSUE DISORDER [None]
